FAERS Safety Report 6671156-5 (Version None)
Quarter: 2010Q2

REPORT INFORMATION
  Report Type: 
  Country: None (occurrence: None)
  Receive Date: 20100407
  Receipt Date: 20100326
  Transmission Date: 20101027
  Serious: Yes (Hospitalization)
  Sender: FDA-Public Use
  Company Number: US-JNJFOC-20100307814

PATIENT
  Age: 50 Year
  Sex: Female
  Weight: 51.71 kg

DRUGS (8)
  1. EXTRA STRENGTH TYLENOL PM [Suspect]
     Indication: PAIN
     Route: 048
  2. EXTRA STRENGTH TYLENOL PM [Suspect]
     Indication: SLEEP DISORDER THERAPY
     Route: 048
  3. PLAVIX [Concomitant]
  4. LIPITOR [Concomitant]
     Indication: CARDIAC DISORDER
     Dosage: AS NEEDED
  5. GABAPENTIN [Concomitant]
     Indication: FIBROMYALGIA
  6. TRAMADOL [Concomitant]
     Indication: FIBROMYALGIA
     Dosage: 50 MG 1-3 TIMES DAILY AS NEEDED
  7. SAVELLA [Concomitant]
     Indication: FIBROMYALGIA
  8. VITAMIN D [Concomitant]
     Indication: BONE DISORDER

REACTIONS (4)
  - ABDOMINAL PAIN UPPER [None]
  - DIARRHOEA [None]
  - GASTRIC HAEMORRHAGE [None]
  - PRODUCT QUALITY ISSUE [None]
